FAERS Safety Report 6752107-1 (Version None)
Quarter: 2010Q2

REPORT INFORMATION
  Report Type: 
  Country: None (occurrence: None)
  Receive Date: 20100602
  Receipt Date: 20100524
  Transmission Date: 20101027
  Serious: Yes (Death)
  Sender: FDA-Public Use
  Company Number: JP-ROCHE-699917

PATIENT
  Sex: Female
  Weight: 53 kg

DRUGS (11)
  1. XELODA [Suspect]
     Indication: RECTAL CANCER METASTATIC
     Dosage: DRUG NAME: XELODA 300. 2 WEEKS ADMINISTRATION FOLLOWED BY 1 WEEK REST.
     Route: 048
     Dates: start: 20100304, end: 20100415
  2. AVASTIN [Suspect]
     Indication: RECTAL CANCER METASTATIC
     Route: 041
     Dates: start: 20080909, end: 20090106
  3. AVASTIN [Suspect]
     Route: 041
     Dates: start: 20100304, end: 20100415
  4. ISOVORIN [Concomitant]
     Route: 041
     Dates: start: 20080909, end: 20090106
  5. FLUOROURACIL [Concomitant]
     Route: 040
     Dates: start: 20080909, end: 20090106
  6. ERBITUX [Concomitant]
     Route: 041
     Dates: start: 20090120, end: 20090331
  7. IRINOTECAN HYDROCHLORIDE [Concomitant]
     Route: 041
     Dates: start: 20090120, end: 20090331
  8. TS-1 [Concomitant]
     Dosage: 2 WEEKS ADMINISTRATION FOLLOWED BY ONE WEEK REST.
     Route: 048
     Dates: start: 20090428, end: 20090929
  9. CODEINE SULFATE [Concomitant]
     Dosage: PERORAL AGENT.
     Route: 048
     Dates: start: 20100210, end: 20100415
  10. RINDERON [Concomitant]
     Route: 048
     Dates: start: 20100210, end: 20100415
  11. LOXONIN [Concomitant]
     Route: 048
     Dates: start: 20100217, end: 20100415

REACTIONS (2)
  - GASTRIC PERFORATION [None]
  - GASTROINTESTINAL NECROSIS [None]
